APPROVED DRUG PRODUCT: QALSODY
Active Ingredient: TOFERSEN
Strength: 100MG/15ML (6.7MG/ML)
Dosage Form/Route: SOLUTION;INTRATHECAL
Application: N215887 | Product #001
Applicant: BIOGEN MA INC
Approved: Apr 25, 2023 | RLD: Yes | RS: Yes | Type: RX

PATENTS:
Patent 10968453 | Expires: Apr 1, 2035
Patent 10669546 | Expires: Apr 1, 2035
Patent 10385341 | Expires: Apr 1, 2035

EXCLUSIVITY:
Code: NCE | Date: Apr 25, 2028
Code: ODE-432 | Date: Apr 25, 2030